FAERS Safety Report 8270271-2 (Version None)
Quarter: 2012Q1

REPORT INFORMATION
  Report Type: 
  Country: None (occurrence: None)
  Receive Date: 20120327
  Receipt Date: 20100408
  Transmission Date: 20120608
  Serious: Yes (Other)
  Sender: FDA-Public Use
  Company Number: PHHY2010US09139

PATIENT
  Age: 65 Year
  Sex: Female
  Weight: 88.4 kg

DRUGS (6)
  1. METFORMIN HCL [Concomitant]
  2. COZAAR [Concomitant]
  3. GLEEVEC [Suspect]
     Indication: GASTROINTESTINAL STROMAL TUMOUR
     Dosage: 400;200 MG, DAILY, ORAL
     Route: 048
     Dates: start: 20091124, end: 20100126
  4. ASPIRIN [Concomitant]
  5. GLIPIZIDE [Concomitant]
  6. HYDROCHLOROTHIAZIDE [Concomitant]

REACTIONS (2)
  - BLOOD CREATININE INCREASED [None]
  - GLOMERULAR FILTRATION RATE DECREASED [None]
